FAERS Safety Report 5215780-5 (Version None)
Quarter: 2007Q1

REPORT INFORMATION
  Report Type: 
  Country: None (occurrence: None)
  Receive Date: 20070118
  Receipt Date: 20070108
  Transmission Date: 20070707
  Serious: Yes (Hospitalization)
  Sender: FDA-Public Use
  Company Number: 2007PV027963

PATIENT
  Age: 81 Year
  Sex: Female
  Weight: 104.3273 kg

DRUGS (12)
  1. BYETTA [Suspect]
     Indication: DIABETES MELLITUS NON-INSULIN-DEPENDENT
     Dosage: 10 MCG;BID;SC; SEE IMAGE
     Route: 058
     Dates: start: 20060601, end: 20060901
  2. BYETTA [Suspect]
     Indication: DIABETES MELLITUS NON-INSULIN-DEPENDENT
     Dosage: 10 MCG;BID;SC; SEE IMAGE
     Route: 058
     Dates: start: 20060901
  3. FOSINOPRIL SODIUM [Concomitant]
  4. FUROSEMIDE [Concomitant]
  5. ALLOPURINOL SODIUM [Concomitant]
  6. NEURONTIN [Concomitant]
  7. AMARYL [Concomitant]
  8. PROTONIX [Concomitant]
  9. LIPITOR [Concomitant]
  10. PLAVIX [Concomitant]
  11. ASPIRIN [Concomitant]
  12. TOPROL-XL [Concomitant]

REACTIONS (5)
  - ABDOMINAL DISTENSION [None]
  - ACIDOSIS [None]
  - LUNG INFILTRATION [None]
  - MYOCARDIAL INFARCTION [None]
  - PULMONARY OEDEMA [None]
